FAERS Safety Report 6718709-3 (Version None)
Quarter: 2010Q2

REPORT INFORMATION
  Report Type: 
  Country: None (occurrence: None)
  Receive Date: 20100505
  Receipt Date: 20100428
  Transmission Date: 20101027
  Serious: No
  Sender: FDA-Public Use
  Company Number: 2010SP021299

PATIENT
  Age: 41 Year
  Sex: Female
  Weight: 70 kg

DRUGS (1)
  1. IMPLANON [Suspect]
     Indication: CONTRACEPTION
     Dosage: 1DF
     Dates: start: 20090101

REACTIONS (3)
  - ABORTION INDUCED [None]
  - DEVICE DISLOCATION [None]
  - PREGNANCY WITH IMPLANT CONTRACEPTIVE [None]
